FAERS Safety Report 15620547 (Version 2)
Quarter: 2018Q4

REPORT INFORMATION
  Report Type: Spontaneous
  Country: US (occurrence: US)
  Receive Date: 20181115
  Receipt Date: 20181204
  Transmission Date: 20190205
  Serious: No
  Sender: FDA-Public Use
  Company Number: US-HORIZON-PRO-0232-2018

PATIENT
  Age: 30 Year
  Sex: Female

DRUGS (13)
  1. CLINDAMYCIN GEL [Concomitant]
  2. RHINOCORT [Concomitant]
     Active Substance: BUDESONIDE
  3. CYSTEAMINE EYE DROPS [Concomitant]
  4. GLIPIZIDE. [Concomitant]
     Active Substance: GLIPIZIDE
  5. ATARAX [Concomitant]
     Active Substance: HYDROXYZINE HYDROCHLORIDE
  6. PREDNISONE. [Concomitant]
     Active Substance: PREDNISONE
  7. SUDAFED [Concomitant]
     Active Substance: PSEUDOEPHEDRINE HYDROCHLORIDE
  8. PROGRAF [Concomitant]
     Active Substance: TACROLIMUS\TACROLIMUS ANHYDROUS
  9. LANTUS [Concomitant]
     Active Substance: INSULIN GLARGINE
  10. SYNTHROID [Concomitant]
     Active Substance: LEVOTHYROXINE SODIUM
  11. TRADJENTA [Concomitant]
     Active Substance: LINAGLIPTIN
  12. PROCYSBI [Suspect]
     Active Substance: CYSTEAMINE BITARTRATE
     Indication: CYSTINOSIS
     Dosage: 600 MG TWICE A DAY
     Route: 048
     Dates: start: 201606
  13. TEDIZOLID [Concomitant]
     Active Substance: TEDIZOLID

REACTIONS (2)
  - Diarrhoea [Unknown]
  - Product use complaint [Unknown]
